FAERS Safety Report 5646680-4 (Version None)
Quarter: 2008Q1

REPORT INFORMATION
  Report Type: 
  Country: None (occurrence: None)
  Receive Date: 20080303
  Receipt Date: 20080227
  Transmission Date: 20080703
  Serious: Yes (Hospitalization)
  Sender: FDA-Public Use
  Company Number: JP-AVENTIS-200810632JP

PATIENT
  Age: 63 Year
  Sex: Male

DRUGS (3)
  1. GLIBENCLAMIDE [Suspect]
     Route: 048
  2. LEVOTHYROXINE SODIUM [Suspect]
     Indication: HYPOTHYROIDISM
     Route: 048
  3. LORAZEPAM [Suspect]
     Route: 048

REACTIONS (4)
  - ATRIAL FIBRILLATION [None]
  - HYPOGLYCAEMIA [None]
  - INTENTIONAL OVERDOSE [None]
  - THYROID FUNCTION TEST ABNORMAL [None]
